FAERS Safety Report 10284061 (Version 1)
Quarter: 2014Q3

REPORT INFORMATION
  Report Type: Spontaneous
  Country: CO (occurrence: CO)
  Receive Date: 20140708
  Receipt Date: 20140708
  Transmission Date: 20150326
  Serious: Yes (Other)
  Sender: FDA-Public Use
  Company Number: CO-PFIZER INC-2014186900

PATIENT
  Age: 35 Year
  Sex: Male

DRUGS (1)
  1. EPAMIN [Suspect]
     Active Substance: PHENYTOIN SODIUM
     Dosage: 100 MG, 3X/DAY
     Route: 048
     Dates: start: 2007

REACTIONS (1)
  - Convulsion [Unknown]

NARRATIVE: CASE EVENT DATE: 20140701
